FAERS Safety Report 4503086-9 (Version None)
Quarter: 2004Q4

REPORT INFORMATION
  Report Type: 
  Country: None (occurrence: None)
  Receive Date: 20041112
  Receipt Date: 20041101
  Transmission Date: 20050328
  Serious: Yes (Other)
  Sender: FDA-Public Use
  Company Number: 20040088741

PATIENT
  Age: 56 Year
  Sex: Male

DRUGS (1)
  1. LINEZOLID TABLET (LINEZOLID) [Suspect]
     Indication: ILL-DEFINED DISORDER
     Dosage: ORAL
     Route: 048

REACTIONS (2)
  - ARRHYTHMIA [None]
  - CARDIAC ARREST [None]
